FAERS Safety Report 22013939 (Version 1)
Quarter: 2023Q1

REPORT INFORMATION
  Report Type: Other
  Country: US (occurrence: US)
  Receive Date: 20230221
  Receipt Date: 20230221
  Transmission Date: 20230418
  Serious: Yes (Death, Life-Threatening, Hospitalization)
  Sender: FDA-Public Use
  Company Number: US-ALVOGEN-2023089235

PATIENT
  Age: 14 Year
  Sex: Female

DRUGS (1)
  1. MINOCYCLINE [Suspect]
     Active Substance: MINOCYCLINE HYDROCHLORIDE
     Indication: Confluent and reticulate papillomatosis
     Dosage: DAILY

REACTIONS (5)
  - Haemophagocytic lymphohistiocytosis [Unknown]
  - Cardiac arrest [Fatal]
  - Hypotension [Fatal]
  - Drug reaction with eosinophilia and systemic symptoms [Unknown]
  - Off label use [Unknown]
